FAERS Safety Report 14692293 (Version 1)
Quarter: 2018Q1

REPORT INFORMATION
  Report Type: Report from Study
  Country: US (occurrence: US)
  Receive Date: 20180329
  Receipt Date: 20180329
  Transmission Date: 20180509
  Serious: Yes (Other)
  Sender: FDA-Public Use
  Company Number: US-ROCHE-2093108

PATIENT
  Sex: Male
  Weight: 118.04 kg

DRUGS (2)
  1. PREDNISONE. [Suspect]
     Active Substance: PREDNISONE
     Indication: POLYMYALGIA RHEUMATICA
     Dosage: ONGOING; YES
     Route: 065
  2. ACTEMRA [Suspect]
     Active Substance: TOCILIZUMAB
     Indication: RHEUMATOID ARTHRITIS
     Dosage: EVERY 2 WEEKS ;ONGOING: YES
     Route: 058
     Dates: start: 201711

REACTIONS (3)
  - Polymyalgia rheumatica [Unknown]
  - Feeling abnormal [Unknown]
  - Drug ineffective [Unknown]
